FAERS Safety Report 8600248 (Version 2)
Quarter: 2013Q3

REPORT INFORMATION
  Report Type: Spontaneous
  Country: FR (occurrence: FR)
  Receive Date: 20120605
  Receipt Date: 20130830
  Transmission Date: 20140515
  Serious: Yes (Hospitalization)
  Sender: FDA-Public Use
  Company Number: FR-ABBOTT-12P-056-0940952-00

PATIENT
  Age: 16 Year
  Sex: Female

DRUGS (5)
  1. DEPAKINE [Suspect]
     Route: 048
     Dates: start: 20110223, end: 20110316
  2. LAMOTRIGINE [Suspect]
     Indication: EPILEPSY
     Route: 048
     Dates: start: 20110216, end: 20110222
  3. LAMOTRIGINE [Suspect]
     Route: 048
     Dates: start: 20110223, end: 20110301
  4. LAMOTRIGINE [Suspect]
     Route: 048
     Dates: start: 20110302, end: 20110316
  5. DEPAKINE [Suspect]
     Indication: EPILEPSY
     Route: 048
     Dates: start: 20110216, end: 20110222

REACTIONS (7)
  - Drug reaction with eosinophilia and systemic symptoms [Recovered/Resolved]
  - Rash [Unknown]
  - Pyrexia [Unknown]
  - Face oedema [Unknown]
  - Lymphadenopathy [Unknown]
  - Hepatocellular injury [Unknown]
  - Eosinophilia [Unknown]
